FAERS Safety Report 5348802-1 (Version None)
Quarter: 2007Q2

REPORT INFORMATION
  Report Type: 
  Country: None (occurrence: None)
  Receive Date: 20070607
  Receipt Date: 20070528
  Transmission Date: 20071010
  Serious: Yes (Life-Threatening, Other)
  Sender: FDA-Public Use
  Company Number: SE-JNJFOC-20070304561

PATIENT
  Age: 56 Year
  Sex: Female

DRUGS (7)
  1. REMICADE [Suspect]
     Indication: CROHN'S DISEASE
     Route: 042
  2. PREDNISOLONE [Concomitant]
     Route: 065
  3. PENTASA [Concomitant]
  4. ENTOCORT [Concomitant]
  5. BEHEPAN [Concomitant]
  6. MINIFOM [Concomitant]
  7. PRIMODIUM [Concomitant]

REACTIONS (5)
  - ABSCESS [None]
  - ADENOCARCINOMA [None]
  - ANAL FISTULA [None]
  - GASTROINTESTINAL CANCER METASTATIC [None]
  - HERPES ZOSTER [None]
